FAERS Safety Report 12653692 (Version 1)
Quarter: 2016Q3

REPORT INFORMATION
  Report Type: Report from Study
  Country: CA (occurrence: CA)
  Receive Date: 20160816
  Receipt Date: 20160816
  Transmission Date: 20161109
  Serious: Yes (Other)
  Sender: FDA-Public Use
  Company Number: CA-AMGEN-CANSL2016097644

PATIENT
  Age: 73 Year
  Sex: Female

DRUGS (6)
  1. BENZAMINE [Concomitant]
     Active Substance: BENZYDAMINE HYDROCHLORIDE
  2. FUROSEMIDE. [Concomitant]
     Active Substance: FUROSEMIDE
     Dosage: UNK
  3. ALLOPURINOL. [Concomitant]
     Active Substance: ALLOPURINOL
  4. RAMIPRIL. [Concomitant]
     Active Substance: RAMIPRIL
     Dosage: UNK
  5. PROLIA [Suspect]
     Active Substance: DENOSUMAB
     Indication: PRODUCT USED FOR UNKNOWN INDICATION
     Dosage: 60 MG/ML, UNK
     Route: 065
     Dates: start: 20140715
  6. GABAPENTIN. [Concomitant]
     Active Substance: GABAPENTIN
     Dosage: UNK

REACTIONS (7)
  - Musculoskeletal pain [Unknown]
  - Musculoskeletal chest pain [Unknown]
  - Skin cancer [Recovering/Resolving]
  - Carpal tunnel decompression [Unknown]
  - Pain [Unknown]
  - Mobility decreased [Unknown]
  - Fall [Unknown]
